FAERS Safety Report 7948629-8 (Version None)
Quarter: 2011Q4

REPORT INFORMATION
  Report Type: 
  Country: None (occurrence: None)
  Receive Date: 20111130
  Receipt Date: 20111116
  Transmission Date: 20120403
  Serious: Yes (Other)
  Sender: FDA-Public Use
  Company Number: US-BAYER-2011-071100

PATIENT
  Age: 30 Year
  Sex: Female
  Weight: 69.841 kg

DRUGS (2)
  1. MICRONOR [Concomitant]
     Indication: CONTRACEPTION
     Dosage: UNK
     Dates: start: 20101221, end: 20110526
  2. MIRENA [Suspect]
     Indication: CONTRACEPTION
     Dosage: 20 MCG/24HR, CONT
     Route: 015
     Dates: start: 20110526, end: 20111026

REACTIONS (3)
  - MEDICAL DEVICE COMPLICATION [None]
  - DEVICE DISLOCATION [None]
  - UTERINE PERFORATION [None]
